FAERS Safety Report 20077255 (Version 1)
Quarter: 2021Q4

REPORT INFORMATION
  Report Type: Spontaneous
  Country: US (occurrence: None)
  Receive Date: 20211116
  Receipt Date: 20211116
  Transmission Date: 20220303
  Serious: Yes (Other)
  Sender: FDA-Public Use
  Company Number: None

PATIENT
  Age: 74 Year
  Sex: Male
  Weight: 113.62 kg

DRUGS (10)
  1. ABEMACICLIB [Suspect]
     Active Substance: ABEMACICLIB
     Indication: Prostate cancer
     Route: 048
     Dates: start: 20210927
  2. ABEMACICLIB [Suspect]
     Active Substance: ABEMACICLIB
     Indication: Prostate cancer
     Route: 048
     Dates: start: 20211018
  3. Aton/astatin 40 mg po qd [Concomitant]
     Dates: start: 20150101
  4. Clopidogrel 75 mg po qd [Concomitant]
     Dates: start: 20150101
  5. Tamsulosin HCL 0.4mg po qd [Concomitant]
  6. Valsarlan Hctz 320mg/25mg po qd [Concomitant]
     Dates: start: 20150101, end: 20211020
  7. Valsartan 320 mg po qd [Concomitant]
     Dates: start: 20211021
  8. Metoprolol Succer 25mg po qd [Concomitant]
     Dates: start: 20211021
  9. lmodium 4 mg po prn [Concomitant]
     Dates: start: 20211021
  10. Citalopram HBR 10 mg po qd [Concomitant]
     Dates: start: 20040101

REACTIONS (1)
  - Lipase increased [None]

NARRATIVE: CASE EVENT DATE: 20211103
